FAERS Safety Report 4564759-5 (Version None)
Quarter: 2005Q1

REPORT INFORMATION
  Report Type: 
  Country: None (occurrence: None)
  Receive Date: 20050128
  Receipt Date: 20050118
  Transmission Date: 20050727
  Serious: Yes (Death, Life-Threatening, Hospitalization, Other)
  Sender: FDA-Public Use
  Company Number: US-ABBOTT-05P-163-0287236-00

PATIENT
  Sex: Male

DRUGS (5)
  1. BIAXIN [Suspect]
     Indication: DRUG USE FOR UNKNOWN INDICATION
     Dates: start: 19960101
  2. BIAXIN [Suspect]
     Dates: start: 20030113
  3. ASPIRIN [Suspect]
     Indication: DRUG USE FOR UNKNOWN INDICATION
  4. COUMADIN [Interacting]
     Indication: DRUG USE FOR UNKNOWN INDICATION
     Dates: start: 20021231
  5. COUMADIN [Interacting]
     Dates: start: 20021001

REACTIONS (21)
  - AMNESIA [None]
  - ASPIRATION [None]
  - BRAIN DAMAGE [None]
  - CHOKING [None]
  - COGNITIVE DISORDER [None]
  - CONFUSIONAL STATE [None]
  - DECREASED ACTIVITY [None]
  - DEPRESSION [None]
  - DISTURBANCE IN ATTENTION [None]
  - DRUG INTERACTION [None]
  - DYSPNOEA [None]
  - GENERAL PHYSICAL HEALTH DETERIORATION [None]
  - HAEMOPTYSIS [None]
  - HAEMORRHAGE [None]
  - OESOPHAGEAL DISORDER [None]
  - OESOPHAGEAL INJURY [None]
  - OXYGEN CONSUMPTION DECREASED [None]
  - PAIN [None]
  - PNEUMONIA [None]
  - RESPIRATORY DISTRESS [None]
  - UNEVALUABLE EVENT [None]
